FAERS Safety Report 23664712 (Version 3)
Quarter: 2024Q3

REPORT INFORMATION
  Report Type: Spontaneous
  Country: US (occurrence: US)
  Receive Date: 20240322
  Receipt Date: 20240701
  Transmission Date: 20241017
  Serious: Yes (Hospitalization, Disabling, Other)
  Sender: PFIZER
  Company Number: US-PFIZER INC-PV202400026963

PATIENT
  Age: 36 Year
  Sex: Female
  Weight: 81.633 kg

DRUGS (7)
  1. DEPO-PROVERA [Suspect]
     Active Substance: MEDROXYPROGESTERONE ACETATE
     Indication: Contraception
     Dosage: EVERY 12 WEEKS
     Dates: start: 1996, end: 2023
  2. DEPO-PROVERA [Suspect]
     Active Substance: MEDROXYPROGESTERONE ACETATE
     Indication: Premenstrual dysphoric disorder
     Dosage: INTRAMUSCULAR-UP UNTIL 2020 RECEIVED INJECTION IN ARM
     Route: 030
     Dates: end: 2020
  3. DEPO-PROVERA [Suspect]
     Active Substance: MEDROXYPROGESTERONE ACETATE
     Indication: Contraception
     Dosage: 2020-2023 RECEIVED INJECTION IN BELLY
     Dates: start: 2020, end: 2023
  4. CALCIUM [Concomitant]
     Active Substance: CALCIUM
     Indication: Osteopenia
     Dosage: UNK (OVER 20 YRS)
     Route: 048
     Dates: start: 1996
  5. CHOLECALCIFEROL [Concomitant]
     Active Substance: CHOLECALCIFEROL
     Dosage: UNK (OVER 20 YRS)
     Route: 048
  6. VITAMIN C [Concomitant]
     Active Substance: ASCORBIC ACID
     Dosage: UNK
     Route: 048
     Dates: start: 2023
  7. VITAMIN B [Concomitant]
     Active Substance: VITAMIN B
     Dosage: UNK
     Route: 048
     Dates: start: 2020

REACTIONS (30)
  - Limb injury [Recovered/Resolved with Sequelae]
  - Tendon rupture [Recovered/Resolved with Sequelae]
  - Pain [Not Recovered/Not Resolved]
  - Meniscus injury [Recovered/Resolved with Sequelae]
  - Limb injury [Not Recovered/Not Resolved]
  - Foot fracture [Recovered/Resolved]
  - Arthropathy [Recovered/Resolved with Sequelae]
  - Muscle spasms [Not Recovered/Not Resolved]
  - Exostosis [Not Recovered/Not Resolved]
  - Balance disorder [Not Recovered/Not Resolved]
  - Diarrhoea [Recovered/Resolved with Sequelae]
  - Knee operation [Recovered/Resolved with Sequelae]
  - Abdominal pain upper [Recovered/Resolved with Sequelae]
  - Anal incontinence [Recovered/Resolved with Sequelae]
  - Gastrooesophageal reflux disease [Recovered/Resolved with Sequelae]
  - Hyperchlorhydria [Recovered/Resolved with Sequelae]
  - Vomiting [Recovered/Resolved with Sequelae]
  - Hypoaesthesia teeth [Recovered/Resolved with Sequelae]
  - Burn oesophageal [Recovered/Resolved with Sequelae]
  - Ligament rupture [Not Recovered/Not Resolved]
  - Syncope [Recovered/Resolved with Sequelae]
  - Bursitis [Unknown]
  - Dehydration [Recovered/Resolved with Sequelae]
  - Myalgia [Not Recovered/Not Resolved]
  - Irritable bowel syndrome [Recovered/Resolved with Sequelae]
  - Nerve injury [Unknown]
  - Tarsal tunnel syndrome [Unknown]
  - Chondromalacia [Unknown]
  - Off label use [Unknown]
  - Incorrect product administration duration [Unknown]

NARRATIVE: CASE EVENT DATE: 20120719
